FAERS Safety Report 7396482-6 (Version None)
Quarter: 2011Q2

REPORT INFORMATION
  Report Type: 
  Country: None (occurrence: None)
  Receive Date: 20110406
  Receipt Date: 20110304
  Transmission Date: 20111010
  Serious: Yes (Hospitalization, Other)
  Sender: FDA-Public Use
  Company Number: US-BAYER-201031817NA

PATIENT
  Sex: Female
  Weight: 95 kg

DRUGS (6)
  1. YASMIN [Suspect]
     Indication: PREMENSTRUAL SYNDROME
  2. WELLBUTRIN [Concomitant]
     Indication: INFLAMMATION
     Dosage: UNK
     Dates: start: 20050101, end: 20090101
  3. YASMIN [Suspect]
     Indication: CONTRACEPTION
     Dosage: UNK
     Route: 048
     Dates: start: 20070101, end: 20090101
  4. NSAID'S [Concomitant]
     Dosage: UNK
     Dates: start: 20050101, end: 20090101
  5. YASMIN [Suspect]
     Indication: DEPRESSION
  6. YASMIN [Suspect]
     Indication: ACNE

REACTIONS (3)
  - DEEP VEIN THROMBOSIS [None]
  - DEPRESSION [None]
  - ANXIETY [None]
